FAERS Safety Report 5684592-0 (Version None)
Quarter: 2008Q1

REPORT INFORMATION
  Report Type: 
  Country: None (occurrence: None)
  Receive Date: 20080328
  Receipt Date: 20070508
  Transmission Date: 20080703
  Serious: Yes (Other)
  Sender: FDA-Public Use
  Company Number: US-BRISTOL-MYERS SQUIBB COMPANY-13725445

PATIENT
  Age: 69 Year
  Sex: Male

DRUGS (18)
  1. ERBITUX [Suspect]
     Indication: COLORECTAL CANCER METASTATIC
     Route: 042
     Dates: start: 20070206, end: 20070206
  2. CPT-11 [Concomitant]
  3. GLUCOTROL [Concomitant]
  4. ACTOS [Concomitant]
  5. STARLIX [Concomitant]
  6. TOPROL [Concomitant]
  7. DIOVAN HCT [Concomitant]
  8. KLOR-CON [Concomitant]
  9. LASIX [Concomitant]
  10. ASPIRIN [Concomitant]
  11. SYNTHROID [Concomitant]
  12. DIGOXIN [Concomitant]
  13. CADUET [Concomitant]
  14. WARFARIN SODIUM [Concomitant]
  15. DECADRON [Concomitant]
  16. ATROPINE [Concomitant]
  17. ONDANSETRON [Concomitant]
  18. CHEMOTHERAPY [Concomitant]

REACTIONS (1)
  - HYPOMAGNESAEMIA [None]
